FAERS Safety Report 11344723 (Version 1)
Quarter: 2015Q3

REPORT INFORMATION
  Report Type: Spontaneous
  Country: CA (occurrence: CA)
  Receive Date: 20150806
  Receipt Date: 20150806
  Transmission Date: 20151125
  Serious: Yes (Other)
  Sender: FDA-Public Use
  Company Number: CA-NOVOPROD-458112

PATIENT
  Age: 58 Year
  Sex: Male

DRUGS (6)
  1. GLICLAZIDE [Concomitant]
     Active Substance: GLICLAZIDE
     Dosage: 1 TAB PER DAY
     Route: 048
     Dates: start: 20140729, end: 20150513
  2. TRAZODONE HYDROCHLORIDE. [Concomitant]
     Active Substance: TRAZODONE HYDROCHLORIDE
     Dosage: 1 TAB EVERY NIGHT AT BEDTIME
     Route: 048
     Dates: start: 20141125, end: 20150513
  3. MICARDIS [Concomitant]
     Active Substance: TELMISARTAN
     Dosage: 1 TAB PER DAY
     Route: 048
     Dates: start: 20150306, end: 20150409
  4. VICTOZA [Suspect]
     Active Substance: LIRAGLUTIDE
     Indication: TYPE 2 DIABETES MELLITUS
     Dosage: 0.6 MG, QD  FOR 14 DAYS
     Route: 058
     Dates: start: 20150306
  5. VICTOZA [Suspect]
     Active Substance: LIRAGLUTIDE
     Dosage: 1.2 MG, QD
     Route: 058
     Dates: end: 20150512
  6. EZETIMIBE. [Concomitant]
     Active Substance: EZETIMIBE
     Dosage: 1 TAB PER DAY (FOR 100 DAYS)
     Route: 048
     Dates: start: 20150306, end: 20150513

REACTIONS (1)
  - Autoimmune hepatitis [Not Recovered/Not Resolved]

NARRATIVE: CASE EVENT DATE: 201505
